FAERS Safety Report 5059538-9 (Version None)
Quarter: 2006Q2

REPORT INFORMATION
  Report Type: 
  Country: None (occurrence: None)
  Receive Date: 20060629
  Receipt Date: 20060322
  Transmission Date: 20061013
  Serious: No
  Sender: FDA-Public Use
  Company Number: PHEH2006US03826

PATIENT
  Age: 73 Year
  Sex: Female

DRUGS (7)
  1. ENABLEX [Suspect]
     Indication: HYPERTONIC BLADDER
     Dosage: 15 MG, QD,
  2. SIMVASTATIN [Concomitant]
  3. EFFEXOR [Concomitant]
  4. IBUPROFEN [Concomitant]
  5. SYNTHROID [Concomitant]
  6. TAMOXIFEN CITRATE [Concomitant]
  7. ZOMETA [Concomitant]

REACTIONS (3)
  - FEELING HOT AND COLD [None]
  - HEPATIC ENZYME INCREASED [None]
  - POLLAKIURIA [None]
